FAERS Safety Report 6977285-0 (Version None)
Quarter: 2010Q3

REPORT INFORMATION
  Report Type: 
  Country: None (occurrence: None)
  Receive Date: 20100910
  Receipt Date: 20100827
  Transmission Date: 20110219
  Serious: Yes (Hospitalization)
  Sender: FDA-Public Use
  Company Number: US-CELGENEUS-163-CCAZA-10061596

PATIENT
  Sex: Male
  Weight: 60.5 kg

DRUGS (37)
  1. AZACITIDINE ORAL [Suspect]
     Route: 048
     Dates: start: 20100526, end: 20100601
  2. AZACITIDINE ORAL [Suspect]
  3. AZACITIDINE [Suspect]
     Route: 058
     Dates: start: 20080514, end: 20080520
  4. AGGRENOX [Concomitant]
     Indication: HYPERHOMOCYSTEINAEMIA
     Route: 048
     Dates: start: 20060501, end: 20080530
  5. VITAMIN B-12 [Concomitant]
     Indication: HYPERHOMOCYSTEINAEMIA
     Route: 030
     Dates: start: 20060501
  6. DILTIAZEM [Concomitant]
     Indication: HYPERTENSION
     Route: 048
     Dates: start: 20071001
  7. TAMSULOSIN HCL [Concomitant]
     Indication: BENIGN PROSTATIC HYPERPLASIA
     Route: 048
     Dates: start: 20040101
  8. FOLBIC [Concomitant]
     Indication: HYPERHOMOCYSTEINAEMIA
     Route: 048
     Dates: start: 20060501
  9. LEVOTHYROXINE SODIUM [Concomitant]
     Indication: HYPOTHYROIDISM
     Route: 048
     Dates: start: 20080226
  10. SIMVASTATIN [Concomitant]
     Route: 048
     Dates: start: 20060501
  11. MULTI-VITAMINS [Concomitant]
     Indication: PRODUCT USED FOR UNKNOWN INDICATION
     Route: 048
  12. GLUCOSAMINE HYDROCHLORIDE [Concomitant]
     Indication: ARTHRITIS
     Route: 048
  13. CIPROFLOXACIN [Concomitant]
     Route: 048
     Dates: start: 20080423
  14. ONDANSETRON [Concomitant]
     Indication: PREMEDICATION
     Route: 048
     Dates: start: 20080518
  15. ONDANSETRON [Concomitant]
     Indication: NAUSEA
  16. ONDANSETRON [Concomitant]
     Indication: VOMITING
  17. ACETAMINOPHEN [Concomitant]
     Indication: PREMEDICATION
     Route: 048
     Dates: start: 20080530
  18. DIPHENHYDRAMINE [Concomitant]
     Indication: PREMEDICATION
     Route: 051
     Dates: start: 20080530
  19. LEVAQUIN [Concomitant]
     Route: 048
     Dates: start: 20080616, end: 20080715
  20. VACYCLOVIR [Concomitant]
     Indication: PROPHYLAXIS
     Dates: start: 20080617, end: 20080715
  21. VORICONAZOLE [Concomitant]
     Indication: INFECTION PROPHYLAXIS
     Route: 048
     Dates: start: 20080617, end: 20080715
  22. CLOBETASOL PROPIONATE [Concomitant]
     Route: 061
     Dates: start: 20080812
  23. STOOL SOFTENER [Concomitant]
     Indication: CONSTIPATION
     Route: 048
     Dates: start: 20080909
  24. CERUMEN REMOVAL LIQUID [Concomitant]
     Indication: CERUMEN IMPACTION
     Route: 061
     Dates: start: 20080610, end: 20080617
  25. IMODIUM [Concomitant]
     Dosage: 1-2 TABLET
     Route: 048
     Dates: start: 20100106
  26. IMODIUM [Concomitant]
     Route: 048
     Dates: start: 20091022, end: 20091028
  27. IMODIUM [Concomitant]
     Route: 048
     Dates: start: 20080922, end: 20081021
  28. MILK OF MAGNESIA TAB [Concomitant]
     Indication: CONSTIPATION
     Route: 048
     Dates: start: 20080909
  29. PROCHLORPERAZINE [Concomitant]
     Indication: PROPHYLAXIS
     Route: 048
     Dates: start: 20081230
  30. PROPOXYPHENE HCL CAP [Concomitant]
     Indication: PAIN
     Route: 048
     Dates: start: 20081230
  31. PROPOXYPHENE HCL CAP [Concomitant]
     Indication: ARTHRITIS
  32. BACTROBAN [Concomitant]
     Indication: ACTINIC KERATOSIS
     Route: 061
     Dates: start: 20090403
  33. TACROLIMUS [Concomitant]
     Indication: LICHEN PLANUS
     Route: 061
     Dates: start: 20090714
  34. LOMOTIL [Concomitant]
     Route: 048
     Dates: start: 20091022
  35. UNASYN [Concomitant]
     Indication: PROPHYLAXIS
     Route: 051
     Dates: start: 20091113, end: 20091113
  36. OXYMETAZOLINE HCL [Concomitant]
     Indication: EPISTAXIS
     Dosage: 2 SPRAYS
     Route: 045
     Dates: start: 20091114, end: 20091117
  37. PERIGARD [Concomitant]
     Route: 048
     Dates: start: 20091124

REACTIONS (5)
  - ASCITES [None]
  - HAEMOGLOBIN DECREASED [None]
  - PLATELET COUNT DECREASED [None]
  - SMALL INTESTINAL OBSTRUCTION [None]
  - WHITE BLOOD CELL COUNT DECREASED [None]
